FAERS Safety Report 17583474 (Version 2)
Quarter: 2021Q2

REPORT INFORMATION
  Report Type: Report from Study
  Country: US (occurrence: US)
  Receive Date: 20200326
  Receipt Date: 20210630
  Transmission Date: 20210716
  Serious: Yes (Hospitalization)
  Sender: FDA-Public Use
  Company Number: US-SHIRE-US202010843

PATIENT
  Sex: Male

DRUGS (1)
  1. LANADELUMAB [Suspect]
     Active Substance: LANADELUMAB
     Indication: HEREDITARY ANGIOEDEMA
     Dosage: 350 MILLILITER, Q2WEEKS
     Route: 058
     Dates: start: 20190910

REACTIONS (4)
  - Product dose omission issue [Recovered/Resolved]
  - Urinary tract infection [Unknown]
  - Infection [Unknown]
  - Hereditary angioedema [Recovered/Resolved]
